FAERS Safety Report 7640945-2 (Version None)
Quarter: 2011Q3

REPORT INFORMATION
  Report Type: 
  Country: None (occurrence: None)
  Receive Date: 20110728
  Receipt Date: 20110719
  Transmission Date: 20111222
  Serious: Yes (Hospitalization, Other)
  Sender: FDA-Public Use
  Company Number: US-JNJFOC-20110708272

PATIENT
  Age: 49 Year
  Sex: Male

DRUGS (2)
  1. PREZISTA [Suspect]
     Indication: HIV INFECTION
     Route: 048
  2. RITONAVIR [Concomitant]
     Indication: HIV INFECTION

REACTIONS (3)
  - LIVER FUNCTION TEST ABNORMAL [None]
  - IMMUNE RECONSTITUTION SYNDROME [None]
  - ANAEMIA [None]
